FAERS Safety Report 9531449 (Version 1)
Quarter: 2013Q2

REPORT INFORMATION
  Report Type: Spontaneous
  Country: US (occurrence: None)
  Receive Date: 20130503
  Receipt Date: 20130503
  Transmission Date: 20140414
  Serious: No
  Sender: FDA-Public Use
  Company Number: 1000043947

PATIENT
  Age: 71 Year
  Sex: Female

DRUGS (9)
  1. DALIRESP (ROFLUMILAST) (500 MICROGRAM, TABLETS) [Suspect]
     Indication: INTERSTITIAL LUNG DISEASE
     Route: 048
     Dates: start: 20130121, end: 20130301
  2. GLIPIZIDE [Concomitant]
  3. OMEPRAZOLE [Concomitant]
  4. AMLODIPINE [Concomitant]
  5. SIMVASTATIN [Concomitant]
  6. ALBUTEROL SULFATE [Concomitant]
  7. COMBIVENT [Concomitant]
  8. SINGULAR [Concomitant]
  9. SYMICORT [Concomitant]

REACTIONS (2)
  - Diarrhoea [None]
  - Off label use [None]
